FAERS Safety Report 5876346-7 (Version None)
Quarter: 2008Q3

REPORT INFORMATION
  Report Type: 
  Country: None (occurrence: None)
  Receive Date: 20080908
  Receipt Date: 20080827
  Transmission Date: 20090109
  Serious: Yes (Death)
  Sender: FDA-Public Use
  Company Number: 2008AL008407

PATIENT
  Age: 84 Year
  Sex: Female
  Weight: 49.8957 kg

DRUGS (4)
  1. DIGOXIN [Suspect]
     Indication: HEART RATE INCREASED
     Dosage: 0.125MG, DAILY, PO
     Route: 048
     Dates: start: 20060101
  2. LIPITOR [Concomitant]
  3. NITROGLYCERIN [Concomitant]
  4. AVAPRO [Concomitant]

REACTIONS (5)
  - CARDIAC ARREST [None]
  - DIZZINESS [None]
  - FATIGUE [None]
  - PALPITATIONS [None]
  - SOMNOLENCE [None]
